FAERS Safety Report 7619938-7 (Version None)
Quarter: 2011Q3

REPORT INFORMATION
  Report Type: 
  Country: None (occurrence: None)
  Receive Date: 20110719
  Receipt Date: 20110714
  Transmission Date: 20111222
  Serious: Yes (Death)
  Sender: FDA-Public Use
  Company Number: DE-SANOFI-AVENTIS-2011SA044802

PATIENT
  Age: 65 Year
  Sex: Male

DRUGS (2)
  1. JEVTANA KIT [Suspect]
     Route: 041
     Dates: start: 20110101, end: 20110101
  2. JEVTANA KIT [Suspect]
     Route: 041
     Dates: start: 20110101, end: 20110101

REACTIONS (1)
  - PULMONARY EMBOLISM [None]
